FAERS Safety Report 12330081 (Version 1)
Quarter: 2016Q2

REPORT INFORMATION
  Report Type: Spontaneous
  Country: US (occurrence: US)
  Receive Date: 20160504
  Receipt Date: 20160504
  Transmission Date: 20160815
  Serious: No
  Sender: FDA-Public Use
  Company Number: US-AMGEN-USASP2016055791

PATIENT
  Age: 78 Year
  Sex: Male

DRUGS (1)
  1. ENBREL [Suspect]
     Active Substance: ETANERCEPT
     Indication: RHEUMATOID ARTHRITIS
     Dosage: UNK UNK, QWK
     Route: 065
     Dates: start: 20160226

REACTIONS (4)
  - Pain [Not Recovered/Not Resolved]
  - Injection site induration [Recovered/Resolved]
  - Injection site erythema [Unknown]
  - Nerve compression [Recovering/Resolving]

NARRATIVE: CASE EVENT DATE: 201604
